FAERS Safety Report 5812613-0 (Version None)
Quarter: 2008Q3

REPORT INFORMATION
  Report Type: 
  Country: None (occurrence: None)
  Receive Date: 20080711
  Receipt Date: 20080627
  Transmission Date: 20090109
  Serious: Yes (Hospitalization)
  Sender: FDA-Public Use
  Company Number: FLCT20080134

PATIENT
  Age: 48 Year
  Sex: Female
  Weight: 88.4514 kg

DRUGS (1)
  1. FLECTOR [Suspect]
     Indication: PAIN
     Dosage: 2 PATCHES Q12H, TOPICAL
     Route: 061
     Dates: start: 20080606, end: 20080601

REACTIONS (1)
  - INTESTINAL OBSTRUCTION [None]
